FAERS Safety Report 5375648-0 (Version None)
Quarter: 2007Q2

REPORT INFORMATION
  Report Type: 
  Country: None (occurrence: None)
  Receive Date: 20070628
  Receipt Date: 20070620
  Transmission Date: 20071010
  Serious: Yes (Hospitalization)
  Sender: FDA-Public Use
  Company Number: 2007US001183

PATIENT
  Age: 33 Year
  Sex: Female
  Weight: 60.8 kg

DRUGS (3)
  1. AMEVIVE [Suspect]
     Indication: PSORIASIS
     Dosage: 15MG, WEEKLY; INTRAMUSCULAR; 15MG, WEEKLY; INTRAMUSCULAR;
     Route: 030
     Dates: start: 20041029, end: 20050114
  2. AMEVIVE [Suspect]
     Indication: PSORIASIS
     Dosage: 15MG, WEEKLY; INTRAMUSCULAR; 15MG, WEEKLY; INTRAMUSCULAR;
     Route: 030
     Dates: start: 20050311
  3. TRIAMCINOLON E (CHLOROXINE) [Concomitant]

REACTIONS (2)
  - ABORTION SPONTANEOUS [None]
  - DRUG EXPOSURE DURING PREGNANCY [None]
